FAERS Safety Report 13698559 (Version 2)
Quarter: 2018Q1

REPORT INFORMATION
  Report Type: Spontaneous
  Country: US (occurrence: US)
  Receive Date: 20170628
  Receipt Date: 20180216
  Transmission Date: 20180508
  Serious: No
  Sender: FDA-Public Use
  Company Number: US-IPSEN BIOPHARMACEUTICALS, INC.-2017-02943

PATIENT
  Age: 39 Year
  Sex: Male
  Weight: 85 kg

DRUGS (8)
  1. BACLOFEN. [Concomitant]
     Active Substance: BACLOFEN
     Indication: MUSCLE SPASTICITY
     Dates: start: 20151014
  2. GABAPENTIN. [Concomitant]
     Active Substance: GABAPENTIN
     Indication: PAIN
     Dates: start: 20151014
  3. DYSPORT [Suspect]
     Active Substance: ABOBOTULINUMTOXINA
     Indication: MUSCLE SPASTICITY
     Dosage: 800 UNITS
     Route: 030
     Dates: start: 20161006, end: 20161006
  4. DYSPORT [Suspect]
     Active Substance: ABOBOTULINUMTOXINA
     Indication: MUSCLE SPASTICITY
  5. DYSPORT [Suspect]
     Active Substance: ABOBOTULINUMTOXINA
     Indication: MUSCLE SPASTICITY
  6. DYSPORT [Suspect]
     Active Substance: ABOBOTULINUMTOXINA
     Indication: MUSCLE SPASTICITY
     Dosage: 500 UNITS
     Route: 030
     Dates: start: 20170406, end: 20170406
  7. NORCO [Concomitant]
     Active Substance: ACETAMINOPHEN\HYDROCODONE BITARTRATE
     Indication: PAIN
     Dosage: 10/325 MG
     Dates: start: 20150818
  8. DYSPORT [Suspect]
     Active Substance: ABOBOTULINUMTOXINA
     Indication: MUSCLE SPASTICITY

REACTIONS (5)
  - Expired product administered [Unknown]
  - Pain in extremity [Recovering/Resolving]
  - Underdose [Unknown]
  - Muscle atrophy [Unknown]
  - Peripheral swelling [Recovering/Resolving]

NARRATIVE: CASE EVENT DATE: 20170406
